FAERS Safety Report 5010389-0 (Version None)
Quarter: 2006Q2

REPORT INFORMATION
  Report Type: 
  Country: None (occurrence: None)
  Receive Date: 20060523
  Receipt Date: 20060508
  Transmission Date: 20061013
  Serious: Yes (Death)
  Sender: FDA-Public Use
  Company Number: 2006VX000509

PATIENT
  Sex: Male

DRUGS (1)
  1. PERMAX [Suspect]

REACTIONS (1)
  - PATHOLOGICAL GAMBLING [None]
